FAERS Safety Report 7184119-0 (Version None)
Quarter: 2010Q4

REPORT INFORMATION
  Report Type: 
  Country: None (occurrence: None)
  Receive Date: 20101222
  Receipt Date: 20101215
  Transmission Date: 20110411
  Serious: Yes (Hospitalization)
  Sender: FDA-Public Use
  Company Number: PT-GILEAD-2010-0034467

PATIENT
  Age: 62 Year
  Sex: Male

DRUGS (8)
  1. TRUVADA [Suspect]
     Indication: HIV INFECTION
     Dates: start: 20050101, end: 20080101
  2. T-20 [Suspect]
     Indication: HIV INFECTION
     Dates: start: 20060101, end: 20080101
  3. AZT [Concomitant]
     Indication: HIV INFECTION
     Dates: start: 19900101, end: 19970101
  4. AZT [Concomitant]
     Dates: start: 20060101, end: 20080101
  5. TIPRANAVIR [Concomitant]
     Indication: HIV INFECTION
     Dates: start: 20060101, end: 20080101
  6. RITONAVIR [Concomitant]
     Indication: HIV INFECTION
     Dates: start: 19960101
  7. RITONAVIR [Concomitant]
     Dates: start: 19980101
  8. RITONAVIR [Concomitant]
     Dates: start: 20060101, end: 20080101

REACTIONS (3)
  - DRUG INTOLERANCE [None]
  - HEPATITIS TOXIC [None]
  - VIRAL TEST POSITIVE [None]
